FAERS Safety Report 9134403 (Version 1)
Quarter: 2013Q1

REPORT INFORMATION
  Report Type: Spontaneous
  Country: IT (occurrence: IT)
  Receive Date: 20130304
  Receipt Date: 20130304
  Transmission Date: 20140127
  Serious: Yes (Hospitalization)
  Sender: FDA-Public Use
  Company Number: IT-JNJFOC-20130214788

PATIENT
  Age: 51 Year
  Sex: Female

DRUGS (8)
  1. SIMPONI [Suspect]
     Indication: RHEUMATOID ARTHRITIS
     Route: 058
     Dates: start: 20111102, end: 20130131
  2. METHOTREXATE SODIUM [Suspect]
     Indication: RHEUMATOID ARTHRITIS
     Route: 030
     Dates: start: 20070701
  3. LANSOPRAZOLE [Concomitant]
     Route: 065
  4. CYMBALTA [Concomitant]
     Route: 065
  5. TOLEP [Concomitant]
     Route: 065
  6. IDEOS [Concomitant]
     Route: 065
  7. DELTACORTENE [Concomitant]
     Route: 065
  8. FOLINA [Concomitant]
     Route: 065

REACTIONS (2)
  - Anaemia [Not Recovered/Not Resolved]
  - Malaise [Not Recovered/Not Resolved]
